FAERS Safety Report 4431070-2 (Version None)
Quarter: 2004Q3

REPORT INFORMATION
  Report Type: 
  Country: None (occurrence: None)
  Receive Date: 20040818
  Receipt Date: 20040729
  Transmission Date: 20050211
  Serious: Yes (Hospitalization, Other)
  Sender: FDA-Public Use
  Company Number: USA040773914

PATIENT
  Age: 71 Year
  Sex: Female
  Weight: 84 kg

DRUGS (20)
  1. FORTEO [Suspect]
     Indication: OSTEOPOROSIS
     Dates: start: 20040722
  2. HUMALOG [Suspect]
     Indication: BLOOD GLUCOSE
  3. CALCIUM CARBONATE + VITAMIN D [Concomitant]
  4. PREDNISONE [Concomitant]
  5. ALLOPURINOL [Concomitant]
  6. DEMADEX [Concomitant]
  7. POTASSIUM [Concomitant]
  8. PRILOSEC [Concomitant]
  9. CELEXA [Concomitant]
  10. NADOLOL [Concomitant]
  11. PREMARIN [Concomitant]
  12. OXYCODONE HCL [Concomitant]
  13. AVAPRO (IRBASERTAN) [Concomitant]
  14. NEURONTIN [Concomitant]
  15. LEVOXYL [Concomitant]
  16. MULTI-VITAMIN [Concomitant]
  17. DETROL [Concomitant]
  18. ACTONEL [Concomitant]
  19. LANTUS [Concomitant]
  20. NIFEREX [Concomitant]

REACTIONS (37)
  - ABASIA [None]
  - BACK PAIN [None]
  - BLEPHARITIS [None]
  - BLINDNESS UNILATERAL [None]
  - BLOOD GLUCOSE FLUCTUATION [None]
  - BLOOD GLUCOSE INCREASED [None]
  - BLOOD PRESSURE INCREASED [None]
  - BODY HEIGHT DECREASED [None]
  - CATARACT [None]
  - CELLULITIS [None]
  - CONDITION AGGRAVATED [None]
  - DIABETIC COMA [None]
  - DYSPNOEA [None]
  - FUNGAL SKIN INFECTION [None]
  - GOUT [None]
  - HAEMORRHAGE [None]
  - HYPOAESTHESIA [None]
  - MALAISE [None]
  - MULTIPLE FRACTURES [None]
  - NECK PAIN [None]
  - NERVOUS SYSTEM DISORDER [None]
  - NEUROPATHY PERIPHERAL [None]
  - ORAL FUNGAL INFECTION [None]
  - PAIN IN EXTREMITY [None]
  - PHARMACEUTICAL PRODUCT COMPLAINT [None]
  - POST PROCEDURAL COMPLICATION [None]
  - POST PROCEDURAL PAIN [None]
  - RETINOPATHY [None]
  - SPINAL FRACTURE [None]
  - THROMBOSIS [None]
  - THYROID DISORDER [None]
  - TREATMENT NONCOMPLIANCE [None]
  - UPPER LIMB FRACTURE [None]
  - URINARY TRACT INFECTION [None]
  - VAGINAL MYCOSIS [None]
  - VASODILATATION [None]
  - VISION BLURRED [None]
